FAERS Safety Report 8021891-1 (Version None)
Quarter: 2012Q1

REPORT INFORMATION
  Report Type: 
  Country: None (occurrence: None)
  Receive Date: 20120104
  Receipt Date: 20120102
  Transmission Date: 20120608
  Serious: Yes (Hospitalization)
  Sender: FDA-Public Use
  Company Number: FR-BAYER-2012-000588

PATIENT
  Age: 42 Year
  Sex: Male

DRUGS (11)
  1. ZOVIRAX [Suspect]
     Dosage: 1200 MG, TID
     Dates: start: 20110910, end: 20110913
  2. ZOVIRAX [Suspect]
     Dosage: 600 MG, TID
     Dates: start: 20110913
  3. LOVENOX [Suspect]
     Dosage: UNK
     Dates: start: 20110905
  4. ATARAX [Suspect]
     Dosage: UNK
     Dates: start: 20110909
  5. DIPROSONE [Suspect]
     Dosage: UNK
     Dates: start: 20110909
  6. NEXIUM [Suspect]
     Dosage: UNK
     Dates: start: 20110905
  7. CIPROFLOXACIN [Suspect]
     Indication: PNEUMONIA
     Dosage: UNK
     Dates: start: 20110911
  8. TRAMADOL HCL [Suspect]
     Dosage: UNK
     Dates: start: 20110905, end: 20110911
  9. PIPERACILLIN AND TAZOBACTAM [Suspect]
     Dosage: UNK
     Dates: start: 20110911
  10. ZOVIRAX [Suspect]
     Dosage: 600 MG, TID
     Dates: start: 20110907, end: 20110910
  11. OXACILLIN [Suspect]
     Indication: PNEUMONIA
     Dosage: UNK
     Dates: start: 20110911

REACTIONS (2)
  - AGITATION [None]
  - AGGRESSION [None]
